FAERS Safety Report 7720434-7 (Version None)
Quarter: 2011Q3

REPORT INFORMATION
  Report Type: 
  Country: None (occurrence: None)
  Receive Date: 20110825
  Receipt Date: 20110816
  Transmission Date: 20111222
  Serious: Yes (Life-Threatening, Disabling)
  Sender: FDA-Public Use
  Company Number: TUK2011A00110

PATIENT
  Age: 66 Year
  Sex: Male

DRUGS (9)
  1. ACETAMINOPHEN [Concomitant]
  2. ACTOS [Suspect]
     Indication: PRODUCT USED FOR UNKNOWN INDICATION
  3. BECLOMETHASONE DIPROPIONATE [Concomitant]
  4. METFORMIN HCL [Concomitant]
  5. ASPIRIN [Concomitant]
  6. RAMIPRIL [Concomitant]
  7. CLENIL MODULITE (BECLOMETASONE DIPROPIONATE) [Concomitant]
  8. SIMVASTATIN [Concomitant]
  9. VOLUMATIC [Concomitant]

REACTIONS (2)
  - CARDIAC FAILURE ACUTE [None]
  - ACUTE LEFT VENTRICULAR FAILURE [None]
